FAERS Safety Report 18071752 (Version 1)
Quarter: 2020Q3

REPORT INFORMATION
  Report Type: Other
  Country: CA (occurrence: CA)
  Receive Date: 20200727
  Receipt Date: 20200727
  Transmission Date: 20201103
  Serious: Yes (Other)
  Sender: FDA-Public Use
  Company Number: CA-COLGATE PALMOLIVE COMPANY-20200701410

PATIENT

DRUGS (11)
  1. CHLORAPREP [Suspect]
     Active Substance: CHLORHEXIDINE GLUCONATE\ISOPROPYL ALCOHOL
     Route: 064
  2. SILDENAFIL. [Suspect]
     Active Substance: SILDENAFIL
     Route: 064
  3. DICLECTIN [Suspect]
     Active Substance: DOXYLAMINE SUCCINATE\PYRIDOXINE HYDROCHLORIDE
     Route: 064
  4. METFORMIN [Suspect]
     Active Substance: METFORMIN HYDROCHLORIDE
     Route: 064
  5. MINERALS NOS;VITAMINS NOS [Suspect]
     Active Substance: MINERALS\VITAMINS
     Route: 064
  6. NIFEDIPINE. [Suspect]
     Active Substance: NIFEDIPINE
     Dosage: 20 MG, 1X/DAY
     Route: 064
  7. NIFEDIPINE. [Suspect]
     Active Substance: NIFEDIPINE
     Indication: HYPERTENSION
     Dosage: 60 MG, 2 EVERY 1 DAY
     Route: 064
  8. METHYLDOPA. [Suspect]
     Active Substance: METHYLDOPA
     Route: 064
  9. INSULIN [Suspect]
     Active Substance: INSULIN NOS
     Indication: TYPE 2 DIABETES MELLITUS
     Route: 064
  10. ACETYLSALICYLIC ACID [Suspect]
     Active Substance: ASPIRIN
     Indication: PROPHYLAXIS
     Route: 064
  11. CHLORHEXIDINE UNSPECIFIED [Suspect]
     Active Substance: CHLORHEXIDINE
     Route: 064

REACTIONS (2)
  - Premature baby [Unknown]
  - Foetal exposure during pregnancy [Unknown]
